FAERS Safety Report 18678893 (Version 5)
Quarter: 2021Q1

REPORT INFORMATION
  Report Type: Report from Study
  Country: None (occurrence: FR)
  Receive Date: 20201230
  Receipt Date: 20210330
  Transmission Date: 20210419
  Serious: Yes (Other)
  Sender: FDA-Public Use
  Company Number: FR-ABBVIE-20K-056-3708303-00

PATIENT
  Age: 61 Year
  Sex: Male
  Weight: 70 kg

DRUGS (5)
  1. DUODOPA [Suspect]
     Active Substance: CARBIDOPA\LEVODOPA
     Dosage: MD:16ML, CONTINUOUS DOSE: FROM 7H?12H:5.6ML, FROM 12H?21H: 5.8ML
     Route: 050
     Dates: start: 20201217, end: 202101
  2. DUODOPA [Suspect]
     Active Substance: CARBIDOPA\LEVODOPA
     Indication: PARKINSON^S DISEASE
     Dosage: MD:16ML, CONTINUOUS DOSE: FROM 7H?12H:5.6ML, FROM 12H?21H: 5.7ML
     Route: 050
     Dates: start: 202009, end: 20201129
  3. DUODOPA [Suspect]
     Active Substance: CARBIDOPA\LEVODOPA
     Dosage: MD:16ML, CONTINUOUS DOSE: FROM 7H?12H:5.6ML, FROM 12H?21H: 5.7ML
     Route: 050
     Dates: start: 20201130, end: 20201216
  4. DUODOPA [Suspect]
     Active Substance: CARBIDOPA\LEVODOPA
     Dosage: MD:16ML, CONTINUOUS FLOW RATE DURING THE DAY: 5.8ML/H
     Route: 050
     Dates: start: 202101, end: 2021
  5. MANTADIX [Concomitant]
     Active Substance: AMANTADINE HYDROCHLORIDE
     Indication: PARKINSON^S DISEASE
     Dosage: 1 ADDITIONAL TABLET AT NOON: 1/1/1?FREQUENCY 1 MORNING / 2 NOON/ 0 EVENING

REACTIONS (15)
  - Balance disorder [Not Recovered/Not Resolved]
  - Incorrect route of product administration [Unknown]
  - Asthenia [Not Recovered/Not Resolved]
  - Asthenia [Unknown]
  - Hypophagia [Unknown]
  - Fall [Not Recovered/Not Resolved]
  - Therapeutic product effect decreased [Not Recovered/Not Resolved]
  - Drug ineffective [Not Recovered/Not Resolved]
  - Stoma site odour [Unknown]
  - Restlessness [Not Recovered/Not Resolved]
  - Apathy [Unknown]
  - Weight decreased [Not Recovered/Not Resolved]
  - Hypotonia [Not Recovered/Not Resolved]
  - On and off phenomenon [Unknown]
  - Speech disorder [Not Recovered/Not Resolved]

NARRATIVE: CASE EVENT DATE: 202011
